FAERS Safety Report 10461093 (Version 1)
Quarter: 2014Q3

REPORT INFORMATION
  Report Type: Spontaneous
  Country: US (occurrence: None)
  Receive Date: 20140917
  Receipt Date: 20140917
  Transmission Date: 20150326
  Serious: No
  Sender: FDA-Public Use
  Company Number: None

PATIENT

DRUGS (2)
  1. ZOLPIDEM [Suspect]
     Active Substance: ZOLPIDEM\ZOLPIDEM TARTRATE
  2. WARFARIN 5MG [Concomitant]
     Active Substance: WARFARIN

REACTIONS (3)
  - Intercepted drug administration error [None]
  - Circumstance or information capable of leading to medication error [None]
  - Drug dispensing error [None]
